FAERS Safety Report 5931792-8 (Version None)
Quarter: 2008Q4

REPORT INFORMATION
  Report Type: 
  Country: None (occurrence: None)
  Receive Date: 20081027
  Receipt Date: 20081015
  Transmission Date: 20090506
  Serious: Yes (Disabling, Other)
  Sender: FDA-Public Use
  Company Number: FR-PFIZER INC-2007040900

PATIENT
  Sex: Male
  Weight: 68 kg

DRUGS (8)
  1. CHAMPIX [Suspect]
     Dates: end: 20070901
  2. PLAVIX [Concomitant]
  3. KARDEGIC [Concomitant]
     Route: 048
     Dates: start: 20040101
  4. PENTOXIFYLLINE [Concomitant]
     Route: 048
     Dates: start: 20040101
  5. FISH OIL [Concomitant]
     Route: 048
     Dates: start: 20040101
  6. OMEPRAZOLE [Concomitant]
     Route: 048
     Dates: start: 20040101
  7. LORAZEPAM [Concomitant]
     Route: 048
     Dates: start: 20040101
  8. ZOLPIDEM TARTRATE [Concomitant]
     Route: 048
     Dates: start: 20040101

REACTIONS (2)
  - PAIN IN EXTREMITY [None]
  - SENSATION OF HEAVINESS [None]
